FAERS Safety Report 16762840 (Version 2)
Quarter: 2019Q3

REPORT INFORMATION
  Report Type: Spontaneous
  Country: GB (occurrence: GB)
  Receive Date: 20190901
  Receipt Date: 20190904
  Transmission Date: 20191005
  Serious: Yes (Other)
  Sender: FDA-Public Use
  Company Number: GB-009507513-1908GBR010275

PATIENT
  Age: 49 Year
  Sex: Female
  Weight: 78 kg

DRUGS (1)
  1. NASONEX [Suspect]
     Active Substance: MOMETASONE FUROATE
     Indication: TINNITUS
     Dosage: 4 DF, QD
     Route: 045
     Dates: start: 20190514, end: 20190526

REACTIONS (1)
  - Retinal migraine [Recovered/Resolved]

NARRATIVE: CASE EVENT DATE: 20190522
